FAERS Safety Report 23508198 (Version 3)
Quarter: 2024Q3

REPORT INFORMATION
  Report Type: Spontaneous
  Country: US (occurrence: US)
  Receive Date: 20240209
  Receipt Date: 20240910
  Transmission Date: 20241017
  Serious: No
  Sender: BAYER
  Company Number: US-BAYER-2024A022463

PATIENT
  Age: 28 Year
  Sex: Female
  Weight: 145.24 kg

DRUGS (1)
  1. MIRENA [Suspect]
     Active Substance: LEVONORGESTREL
     Indication: Intrauterine contraception
     Dosage: 20?G/DAY
     Route: 015
     Dates: start: 20230417, end: 20240311

REACTIONS (7)
  - Menstruation irregular [Recovered/Resolved]
  - Device expulsion [Recovered/Resolved]
  - Dyspareunia [Recovered/Resolved]
  - Vaginal odour [Recovered/Resolved]
  - Vaginal infection [Recovered/Resolved]
  - Abdominal pain lower [Recovered/Resolved]
  - Bacterial vaginosis [Recovered/Resolved]

NARRATIVE: CASE EVENT DATE: 20230101
